FAERS Safety Report 5633538-X (Version None)
Quarter: 2008Q1

REPORT INFORMATION
  Report Type: 
  Country: None (occurrence: None)
  Receive Date: 20080221
  Receipt Date: 20080213
  Transmission Date: 20080703
  Serious: Yes (Hospitalization, Other)
  Sender: FDA-Public Use
  Company Number: AU-PFIZER INC-2008006130

PATIENT
  Sex: Female
  Weight: 70 kg

DRUGS (3)
  1. CHANTIX [Suspect]
     Route: 048
  2. VENTOLIN [Concomitant]
     Indication: EMPHYSEMA
  3. FLIXOTAIDE [Concomitant]
     Indication: EMPHYSEMA

REACTIONS (2)
  - MUSCLE SPASMS [None]
  - MYALGIA [None]
